FAERS Safety Report 6768263-5 (Version None)
Quarter: 2010Q2

REPORT INFORMATION
  Report Type: 
  Country: None (occurrence: None)
  Receive Date: 20100614
  Receipt Date: 20100607
  Transmission Date: 20101027
  Serious: Yes (Other)
  Sender: FDA-Public Use
  Company Number: CA-ASTRAZENECA-2010SE26932

PATIENT
  Age: 54 Year
  Sex: Male
  Weight: 99.8 kg

DRUGS (3)
  1. CRESTOR [Suspect]
     Route: 048
  2. METFORMIN HCL [Concomitant]
     Route: 048
  3. PRINIVIL [Concomitant]
     Route: 048

REACTIONS (6)
  - ABDOMINAL DISTENSION [None]
  - ABDOMINAL PAIN UPPER [None]
  - AFFECT LABILITY [None]
  - AMNESIA [None]
  - ANGER [None]
  - CHROMATURIA [None]
